FAERS Safety Report 15599080 (Version 4)
Quarter: 2018Q4

REPORT INFORMATION
  Report Type: Spontaneous
  Country: US (occurrence: US)
  Receive Date: 20181108
  Receipt Date: 20181218
  Transmission Date: 20190205
  Serious: Yes (Hospitalization, Other)
  Sender: FDA-Public Use
  Company Number: US-ASTRAZENECA-2018SF44105

PATIENT
  Age: 81 Year
  Sex: Female
  Weight: 49 kg

DRUGS (1)
  1. BYDUREON BCISE [Suspect]
     Active Substance: EXENATIDE
     Indication: DIABETES MELLITUS
     Route: 058
     Dates: start: 201809

REACTIONS (10)
  - Product dose omission [Not Recovered/Not Resolved]
  - Underdose [Unknown]
  - Device issue [Unknown]
  - Blood glucose increased [Not Recovered/Not Resolved]
  - Kidney infection [Unknown]
  - Mental disorder [Unknown]
  - Device defective [Unknown]
  - Drug ineffective [Not Recovered/Not Resolved]
  - Device leakage [Unknown]
  - Visual impairment [Unknown]

NARRATIVE: CASE EVENT DATE: 2018
